FAERS Safety Report 24412526 (Version 2)
Quarter: 2024Q4

REPORT INFORMATION
  Report Type: Spontaneous
  Country: JP (occurrence: JP)
  Receive Date: 20241008
  Receipt Date: 20241022
  Transmission Date: 20250114
  Serious: Yes (Death)
  Sender: JOHNSON AND JOHNSON
  Company Number: JP-JNJFOC-20241021498

PATIENT
  Age: 1 Year
  Sex: Female

DRUGS (5)
  1. TOPIRAMATE [Suspect]
     Active Substance: TOPIRAMATE
     Indication: Epilepsy
     Dosage: 2 MG/KG?TOPINA FINE GRANULES 10%
     Route: 048
     Dates: start: 20240609, end: 20240610
  2. PHENOBARBITAL [Concomitant]
     Active Substance: PHENOBARBITAL
     Dates: end: 20240610
  3. CYANOCOBALAMIN\PYRIDOXINE HYDROCHLORIDE\THIAMINE [Concomitant]
     Active Substance: CYANOCOBALAMIN\PYRIDOXINE HYDROCHLORIDE\THIAMINE
     Dates: end: 20240610
  4. EDARAVONE [Concomitant]
     Active Substance: EDARAVONE
     Dates: end: 20240610
  5. CARNITINE CHLORIDE [Concomitant]
     Active Substance: CARNITINE CHLORIDE
     Dates: end: 20240610

REACTIONS (2)
  - Molybdenum cofactor deficiency [Fatal]
  - Off label use [Fatal]
